FAERS Safety Report 8048336-X (Version None)
Quarter: 2012Q1

REPORT INFORMATION
  Report Type: 
  Country: None (occurrence: None)
  Receive Date: 20120117
  Receipt Date: 20120112
  Transmission Date: 20120608
  Serious: No
  Sender: FDA-Public Use
  Company Number: US-PFIZER INC-2012009955

PATIENT
  Sex: Male

DRUGS (1)
  1. LIPITOR [Suspect]
     Indication: ARTERIAL OCCLUSIVE DISEASE
     Dosage: UNK
     Dates: start: 19990101

REACTIONS (2)
  - NERVE COMPRESSION [None]
  - PAIN IN EXTREMITY [None]
